FAERS Safety Report 22595468 (Version 1)
Quarter: 2023Q2

REPORT INFORMATION
  Report Type: Spontaneous
  Country: US (occurrence: US)
  Receive Date: 20230613
  Receipt Date: 20230613
  Transmission Date: 20230722
  Serious: No
  Sender: FDA-Public Use
  Company Number: US-PFIZER INC-202300216425

PATIENT
  Age: 78 Year
  Sex: Female
  Weight: 57.61 kg

DRUGS (3)
  1. IBRANCE [Suspect]
     Active Substance: PALBOCICLIB
     Indication: Breast cancer metastatic
     Dosage: 125 MG, CYCLIC (ONE TABLET DAILY FOR 3 WEEKS ON AND THEN 1 WEEK OFF)
     Dates: start: 202304
  2. FASLODEX [Concomitant]
     Active Substance: FULVESTRANT
     Dosage: 3 DF (3 SETS OF INJECTIONS EVERY TWO WEEKS), INJECTION INTO HER HIPS
     Route: 014
  3. FASLODEX [Concomitant]
     Active Substance: FULVESTRANT
     Dosage: 1 DF, MONTHLY (GET AN INJECTION EVERY MONTH), INJECTION INTO HER HIPS
     Route: 014

REACTIONS (3)
  - White blood cell count decreased [Recovering/Resolving]
  - Dyspnoea [Not Recovered/Not Resolved]
  - Neoplasm progression [Not Recovered/Not Resolved]

NARRATIVE: CASE EVENT DATE: 20230101
